FAERS Safety Report 14572959 (Version 1)
Quarter: 2018Q1

REPORT INFORMATION
  Report Type: Spontaneous
  Country: US (occurrence: US)
  Receive Date: 20180223
  Receipt Date: 20180223
  Transmission Date: 20180509
  Serious: Yes (Life-Threatening, Hospitalization, Disabling, Other)
  Sender: FDA-Public Use
  Company Number: None

PATIENT
  Age: 37 Year
  Sex: Male
  Weight: 150.75 kg

DRUGS (1)
  1. AMBIEN [Suspect]
     Active Substance: ZOLPIDEM TARTRATE
     Indication: INSOMNIA
     Route: 048

REACTIONS (6)
  - Suicide attempt [None]
  - Incorrect dose administered [None]
  - Somnambulism [None]
  - Frostbite [None]
  - Haemorrhage [None]
  - Road traffic accident [None]

NARRATIVE: CASE EVENT DATE: 20180111
